FAERS Safety Report 9989794 (Version 1)
Quarter: 2014Q1

REPORT INFORMATION
  Report Type: Report from Study
  Country: US (occurrence: US)
  Receive Date: 20140310
  Receipt Date: 20140310
  Transmission Date: 20141002
  Serious: No
  Sender: FDA-Public Use
  Company Number: US-ABBVIE-13P-163-1136857-00

PATIENT
  Age: 37 Year
  Sex: Female

DRUGS (15)
  1. HUMIRA [Suspect]
     Indication: COLITIS ULCERATIVE
     Dates: start: 20130426
  2. OMEPRAZOLE [Concomitant]
     Indication: DYSPEPSIA
  3. OMEPRAZOLE [Concomitant]
     Indication: DYSPEPSIA
  4. DICYCLOMINE [Concomitant]
     Indication: COLITIS
     Dosage: 20 MG 1 TAB EVERY 6 HOURS AS NEEDED
  5. DICYCLOMINE [Concomitant]
     Indication: MUSCLE SPASMS
  6. PREDNISONE [Concomitant]
     Indication: COLITIS
     Dosage: TAPER
  7. BENADRYL [Concomitant]
     Indication: HYPERSENSITIVITY
  8. NORTRIPTYLINE [Concomitant]
     Indication: MIGRAINE
     Dosage: AT BEDTIME
  9. PROPRANOLOL [Concomitant]
     Indication: MIGRAINE
  10. PROMETHAZINE [Concomitant]
     Indication: NAUSEA
     Dosage: 25 MG 1 TAB EVERY 6 HOURS AS NEEDED
  11. ZOLPIDEM [Concomitant]
     Indication: INSOMNIA
     Dosage: AT NIGHT
  12. SERTRALINE [Concomitant]
     Indication: MIGRAINE
     Dosage: .5 TAB DAILY
     Dates: start: 201306
  13. SERTRALINE [Concomitant]
     Dosage: 1 TAB DAILY
  14. SERTRALINE [Concomitant]
     Dosage: 1.5 TAB DAILY
  15. LAMOTRIGINE [Concomitant]
     Indication: MIGRAINE

REACTIONS (2)
  - Hot flush [Not Recovered/Not Resolved]
  - Injection site pain [Not Recovered/Not Resolved]
